FAERS Safety Report 23735190 (Version 1)
Quarter: 2024Q2

REPORT INFORMATION
  Report Type: Spontaneous
  Country: ZA (occurrence: ZA)
  Receive Date: 20240412
  Receipt Date: 20240412
  Transmission Date: 20240716
  Serious: Yes (Hospitalization, Other)
  Sender: FDA-Public Use
  Company Number: ZA-IPCA LABORATORIES LIMITED-IPC-2024-ZA-000851

PATIENT

DRUGS (9)
  1. WARFARIN SODIUM [Interacting]
     Active Substance: WARFARIN SODIUM
     Indication: Product used for unknown indication
     Dosage: UNK
     Route: 065
  2. WARFARIN SODIUM [Interacting]
     Active Substance: WARFARIN SODIUM
     Dosage: 2.5 MILLIGRAM, QD
     Route: 065
  3. WARFARIN SODIUM [Interacting]
     Active Substance: WARFARIN SODIUM
     Dosage: 2.5 MILLIGRAM TWICE WEEKLY
     Route: 065
  4. VALPROATE SODIUM [Interacting]
     Active Substance: VALPROATE SODIUM
     Indication: Product used for unknown indication
     Dosage: UNK
     Route: 065
  5. COTRIMOXAZOLE [Interacting]
     Active Substance: SULFAMETHOXAZOLE\TRIMETHOPRIM
     Indication: Pneumocystis jirovecii pneumonia
     Dosage: 320/1600 MG
     Route: 065
  6. COTRIMOXAZOLE [Interacting]
     Active Substance: SULFAMETHOXAZOLE\TRIMETHOPRIM
     Dosage: 240/1200 MG
     Route: 065
  7. COTRIMOXAZOLE [Interacting]
     Active Substance: SULFAMETHOXAZOLE\TRIMETHOPRIM
     Dosage: 160/800 MG
     Route: 065
  8. FLUCONAZOLE [Interacting]
     Active Substance: FLUCONAZOLE
     Indication: Meningitis cryptococcal
     Dosage: 1.2 GRAM
     Route: 065
  9. FLUCONAZOLE [Interacting]
     Active Substance: FLUCONAZOLE
     Dosage: 800 MILLIGRAM, QD
     Route: 048

REACTIONS (4)
  - Toxicity to various agents [Recovered/Resolved]
  - Anticoagulation drug level above therapeutic [Recovered/Resolved]
  - Epistaxis [Recovered/Resolved]
  - Drug interaction [Unknown]
